FAERS Safety Report 9993151 (Version 2)
Quarter: 2014Q1

REPORT INFORMATION
  Report Type: Report from Study
  Country: US (occurrence: US)
  Receive Date: 20140310
  Receipt Date: 20140310
  Transmission Date: 20141002
  Serious: No
  Sender: FDA-Public Use
  Company Number: US-ABBVIE-13P-163-1060332-00

PATIENT
  Age: 31 Year
  Sex: Female
  Weight: 72.19 kg

DRUGS (3)
  1. LUPRON DEPOT [Suspect]
     Indication: ENDOMETRIOSIS
     Route: 030
     Dates: start: 20130120, end: 20130120
  2. LEVOTHYROXINE [Concomitant]
     Indication: HYPOTHYROIDISM
     Dosage: 112 MCG DAILY
     Route: 048
  3. CALCIUM [Concomitant]
     Indication: PRODUCT USED FOR UNKNOWN INDICATION
     Dosage: 1200 MG DAILY
     Route: 048

REACTIONS (7)
  - Menstrual disorder [Unknown]
  - Hot flush [Recovering/Resolving]
  - Night sweats [Recovering/Resolving]
  - Memory impairment [Not Recovered/Not Resolved]
  - Mood swings [Recovered/Resolved]
  - Headache [Not Recovered/Not Resolved]
  - Migraine [Not Recovered/Not Resolved]
